FAERS Safety Report 6083097-5 (Version None)
Quarter: 2009Q1

REPORT INFORMATION
  Report Type: 
  Country: None (occurrence: None)
  Receive Date: 20090213
  Receipt Date: 20090213
  Transmission Date: 20090719
  Serious: Yes (Other)
  Sender: FDA-Public Use
  Company Number: None

PATIENT
  Sex: Female
  Weight: 86.1834 kg

DRUGS (2)
  1. AMOXICILLIN [Suspect]
     Indication: PNEUMONIA
     Dosage: 875 MG 2 TIMES DAY
     Dates: start: 20090123, end: 20090126
  2. CEFDINIR [Suspect]
     Dosage: 300 MG 2 TIMES DAY
     Dates: start: 20090127, end: 20090206

REACTIONS (1)
  - RESPIRATORY DISORDER [None]
